FAERS Safety Report 8013581-6 (Version None)
Quarter: 2011Q4

REPORT INFORMATION
  Report Type: 
  Country: None (occurrence: None)
  Receive Date: 20111229
  Receipt Date: 20111219
  Transmission Date: 20120403
  Serious: Yes (Death)
  Sender: FDA-Public Use
  Company Number: JP-SANOFI-AVENTIS-2011SA084912

PATIENT
  Age: 79 Year
  Sex: Male

DRUGS (24)
  1. ASPIRIN [Concomitant]
     Route: 048
     Dates: start: 20091020
  2. LASIX [Concomitant]
     Route: 048
     Dates: start: 20091026
  3. BISOLVON [Concomitant]
     Route: 048
  4. MAGNESIUM OXIDE [Concomitant]
     Route: 048
  5. FIRSTCIN [Concomitant]
     Indication: INFECTION PROPHYLAXIS
     Dosage: INJECTION
     Dates: start: 20091021, end: 20091023
  6. TANADOPA [Concomitant]
     Route: 048
     Dates: start: 20091024, end: 20091112
  7. CLOPIDOGREL BISULFATE [Suspect]
     Dosage: MAINTAINANCE  TREATMENT
     Route: 065
     Dates: start: 20091020, end: 20110526
  8. ACARDI [Concomitant]
     Route: 048
     Dates: start: 20091029
  9. WARFARIN SODIUM [Concomitant]
     Route: 048
     Dates: start: 20091107
  10. SIGMART [Concomitant]
     Dosage: INJECTION
     Dates: start: 20091019, end: 20091020
  11. MARZULENE [Concomitant]
     Route: 048
  12. CLOPIDOGREL BISULFATE [Suspect]
     Dosage: LOADING TREATMENT
     Route: 065
     Dates: start: 20091019, end: 20091019
  13. OMEPRAZOLE [Concomitant]
     Route: 048
     Dates: start: 20091020
  14. SIGMART [Concomitant]
     Dosage: INJECTION
     Route: 048
     Dates: start: 20091020
  15. ALL OTHER THERAPEUTIC PRODUCTS [Concomitant]
     Dates: start: 20091020
  16. LASIX [Concomitant]
     Route: 048
     Dates: start: 20091023, end: 20091025
  17. HEPARIN [Concomitant]
     Dosage: DOSE:10000 UNIT(S)
     Route: 042
     Dates: start: 20091019, end: 20091019
  18. HEPARIN [Concomitant]
     Dosage: 12000 E
     Route: 042
     Dates: start: 20091020, end: 20091021
  19. CARVEDILOL [Concomitant]
     Route: 048
     Dates: start: 20091107
  20. ISOSORBIDE DINITRATE [Concomitant]
     Dosage: DOSE: 4 ML/H INFUSION
     Dates: start: 20091019, end: 20091020
  21. HEPARIN [Concomitant]
     Dosage: DOSE:14000 UNIT(S)
     Route: 042
     Dates: start: 20091019, end: 20091020
  22. TANADOPA [Concomitant]
     Route: 048
     Dates: start: 20091112, end: 20091118
  23. MUCODYNE [Concomitant]
     Route: 048
  24. DOPAMINE HCL [Concomitant]
     Dosage: INFUSION
     Dates: start: 20091026, end: 20091102

REACTIONS (1)
  - DEATH [None]
